FAERS Safety Report 4613576-6 (Version None)
Quarter: 2005Q1

REPORT INFORMATION
  Report Type: 
  Country: None (occurrence: None)
  Receive Date: 20050315
  Receipt Date: 20050301
  Transmission Date: 20050727
  Serious: Yes (Life-Threatening, Hospitalization)
  Sender: FDA-Public Use
  Company Number: A02200500527

PATIENT
  Age: 70 Year
  Sex: Male

DRUGS (1)
  1. KAYEXALATE [Suspect]
     Dosage: RECTAL
     Route: 054
     Dates: start: 20040413

REACTIONS (5)
  - COLITIS ISCHAEMIC [None]
  - GASTROINTESTINAL DISORDER [None]
  - HAEMODYNAMIC INSTABILITY [None]
  - NECROSIS ISCHAEMIC [None]
  - RECTAL HAEMORRHAGE [None]
